FAERS Safety Report 11624922 (Version 1)
Quarter: 2015Q4

REPORT INFORMATION
  Report Type: Spontaneous
  Country: US (occurrence: US)
  Receive Date: 20151013
  Receipt Date: 20151013
  Transmission Date: 20160304
  Serious: No
  Sender: FDA-Public Use
  Company Number: US-009507513-1510USA004823

PATIENT

DRUGS (2)
  1. BELSOMRA [Suspect]
     Active Substance: SUVOREXANT
     Indication: MIDDLE INSOMNIA
  2. BELSOMRA [Suspect]
     Active Substance: SUVOREXANT
     Indication: INITIAL INSOMNIA
     Dosage: UNK
     Route: 048
     Dates: start: 201509, end: 20150930

REACTIONS (5)
  - Agitation [Unknown]
  - Feeling abnormal [Unknown]
  - Drug ineffective [Unknown]
  - Abnormal dreams [Unknown]
  - Anxiety [Unknown]

NARRATIVE: CASE EVENT DATE: 2015
